FAERS Safety Report 4477598-0 (Version None)
Quarter: 2004Q4

REPORT INFORMATION
  Report Type: 
  Country: None (occurrence: None)
  Receive Date: 20041014
  Receipt Date: 20040930
  Transmission Date: 20050328
  Serious: Yes (Other)
  Sender: FDA-Public Use
  Company Number: 202617

PATIENT
  Age: 56 Year
  Sex: Female

DRUGS (5)
  1. AVONEX [Suspect]
     Indication: MULTIPLE SCLEROSIS
     Dosage: 30 MCG QW IM
     Route: 030
     Dates: start: 20021101
  2. NEURONTIN [Concomitant]
  3. TOPROL-XL [Concomitant]
  4. DETROL [Concomitant]
  5. PAXIL [Concomitant]

REACTIONS (6)
  - AORTIC VALVE STENOSIS [None]
  - BICUSPID AORTIC VALVE [None]
  - CONDITION AGGRAVATED [None]
  - HYPOVENTILATION [None]
  - MITRAL VALVE INCOMPETENCE [None]
  - SLEEP DISORDER [None]
